FAERS Safety Report 6182352-8 (Version None)
Quarter: 2009Q2

REPORT INFORMATION
  Report Type: 
  Country: None (occurrence: None)
  Receive Date: 20090507
  Receipt Date: 20090420
  Transmission Date: 20091009
  Serious: Yes (Hospitalization)
  Sender: FDA-Public Use
  Company Number: PHHY2009JP14765

PATIENT
  Sex: Female

DRUGS (22)
  1. DIOVAN T30230+TAB+HY [Suspect]
     Indication: HYPERTENSION
     Dosage: 80 MG, QD
     Route: 048
     Dates: start: 20080412, end: 20090129
  2. CALBLOCK [Concomitant]
     Indication: HYPERTENSION
     Dosage: 16 MG
     Route: 048
     Dates: end: 20090119
  3. MICARDIS [Concomitant]
     Indication: HYPERTENSION
     Dosage: 40 MG
     Route: 048
     Dates: end: 20080412
  4. CALCITRIOL [Concomitant]
     Dosage: 0.5 UG
     Route: 048
     Dates: end: 20090119
  5. LOCHOL [Concomitant]
     Dosage: 20 MG
     Route: 048
     Dates: end: 20090119
  6. CERCINE [Concomitant]
     Dosage: 4 MG
     Route: 048
     Dates: end: 20090119
  7. ALLELOCK [Concomitant]
     Dosage: 10 MG
     Route: 048
     Dates: end: 20090119
  8. BETAHISTINE MESILATE [Concomitant]
     Dosage: 36 MG
     Route: 048
  9. RESPLEN [Concomitant]
     Dosage: 90 MG
     Route: 048
  10. ISOSORBIDE DINITRATE [Concomitant]
     Dosage: 40 MG
     Route: 062
     Dates: end: 20090119
  11. RHYTHMY [Concomitant]
     Dosage: 2 MG
     Route: 048
  12. ALFACALCIDOL [Concomitant]
     Dosage: 0.5 UG
     Route: 048
     Dates: start: 20090302
  13. PATANOL [Concomitant]
     Dosage: 0.36 ML
     Route: 031
     Dates: start: 20080722, end: 20090413
  14. SODIUM PICOSULFATE [Concomitant]
     Dosage: 5 MG
     Route: 048
     Dates: start: 20080919, end: 20090119
  15. ELCITONIN [Concomitant]
     Dosage: 20 IU
     Route: 030
  16. ASPIRIN [Concomitant]
  17. GASTER D [Concomitant]
  18. ADALAT [Concomitant]
  19. ASTOMIN [Concomitant]
  20. CALBLOCK [Concomitant]
  21. PLAVIX [Concomitant]
  22. LIPITOR [Concomitant]

REACTIONS (4)
  - BLOOD TRIGLYCERIDES INCREASED [None]
  - CEREBRAL INFARCTION [None]
  - HEMIPLEGIA [None]
  - HIGH DENSITY LIPOPROTEIN INCREASED [None]
